FAERS Safety Report 6994273-9 (Version None)
Quarter: 2010Q3

REPORT INFORMATION
  Report Type: 
  Country: None (occurrence: None)
  Receive Date: 20100917
  Receipt Date: 20100301
  Transmission Date: 20110219
  Serious: Yes (Other)
  Sender: FDA-Public Use
  Company Number: US-ASTRAZENECA-2009UW20598

PATIENT
  Sex: Male

DRUGS (6)
  1. SEROQUEL [Suspect]
     Route: 048
     Dates: start: 20051128
  2. OXYCODONE HCL AND ACETAMINOPHEN [Concomitant]
     Dosage: 5/325
     Dates: start: 20051201
  3. ALPRAZOLAM [Concomitant]
     Dates: start: 20050419
  4. BUSPIRONE HCL [Concomitant]
     Dates: start: 20060511
  5. DIAZEPAM [Concomitant]
     Dates: start: 20060515
  6. HYDROCODONE [Concomitant]
     Dosage: 5 TO 7.5 / 650
     Dates: start: 20051010

REACTIONS (3)
  - DIABETES MELLITUS [None]
  - KETOACIDOSIS [None]
  - PANCREATITIS [None]
